FAERS Safety Report 8462953-4 (Version None)
Quarter: 2012Q2

REPORT INFORMATION
  Report Type: 
  Country: None (occurrence: None)
  Receive Date: 20120625
  Receipt Date: 20120619
  Transmission Date: 20120825
  Serious: Yes (Hospitalization)
  Sender: FDA-Public Use
  Company Number: US-GLAXOSMITHKLINE-A0915625A

PATIENT
  Age: 42 Year
  Sex: Male
  Weight: 95.5 kg

DRUGS (3)
  1. AVANDIA [Suspect]
     Indication: DIABETES MELLITUS
     Dosage: 4MG PER DAY
     Route: 048
     Dates: start: 20001001, end: 20020605
  2. LIPITOR [Concomitant]
  3. ATENOLOL [Concomitant]

REACTIONS (4)
  - MUSCULOSKELETAL PAIN [None]
  - PAIN [None]
  - CORONARY ARTERY DISEASE [None]
  - PAIN IN EXTREMITY [None]
